FAERS Safety Report 7639066-4 (Version None)
Quarter: 2011Q3

REPORT INFORMATION
  Report Type: 
  Country: None (occurrence: None)
  Receive Date: 20110726
  Receipt Date: 20110726
  Transmission Date: 20111222
  Serious: Yes (Life-Threatening)
  Sender: FDA-Public Use
  Company Number: None

PATIENT
  Age: 63 Year
  Sex: Male
  Weight: 99.5 kg

DRUGS (1)
  1. LIDOCAINE [Suspect]
     Indication: CHEST PAIN
     Dosage: 10 ML ONCE PO
     Route: 048
     Dates: start: 20110627, end: 20110627

REACTIONS (5)
  - TREMOR [None]
  - BRUXISM [None]
  - ANAPHYLACTIC REACTION [None]
  - AGITATION [None]
  - THROAT TIGHTNESS [None]
